FAERS Safety Report 6377391-8 (Version None)
Quarter: 2009Q3

REPORT INFORMATION
  Report Type: 
  Country: None (occurrence: None)
  Receive Date: 20090923
  Receipt Date: 20090923
  Transmission Date: 20100115
  Serious: No
  Sender: FDA-Public Use
  Company Number: None

PATIENT
  Age: 66 Year
  Sex: Male
  Weight: 78.2 kg

DRUGS (8)
  1. HEPARIN [Suspect]
     Dosage: INFUSION
     Dates: start: 20090627, end: 20090628
  2. WARFARIN [Concomitant]
  3. CLOPIDOGREL [Concomitant]
  4. ASPIRIN [Concomitant]
  5. AMLODIPINE [Concomitant]
  6. BENZOPRIL [Concomitant]
  7. CITALOPRAM HYDROBROMIDE [Concomitant]
  8. BISOPROLOL [Concomitant]

REACTIONS (5)
  - CEREBROVASCULAR ACCIDENT [None]
  - EMBOLISM [None]
  - HEPARIN-INDUCED THROMBOCYTOPENIA [None]
  - IMMUNOLOGY TEST [None]
  - LABORATORY TEST ABNORMAL [None]
